FAERS Safety Report 7349547-9 (Version None)
Quarter: 2011Q1

REPORT INFORMATION
  Report Type: 
  Country: None (occurrence: None)
  Receive Date: 20110314
  Receipt Date: 20101222
  Transmission Date: 20110831
  Serious: No
  Sender: FDA-Public Use
  Company Number: US-B.I. PHARMACEUTICALS,INC./RIDGEFIELD-2010-BP-15385BP

PATIENT
  Sex: Female

DRUGS (15)
  1. PRADAXA [Suspect]
     Indication: ATRIAL FIBRILLATION
     Dosage: 300 MG
     Route: 048
     Dates: start: 20101213, end: 20101219
  2. MULTAQ [Concomitant]
     Indication: CARDIAC DISORDER
     Dosage: 80 MG
     Route: 048
  3. FOLIC ACID [Concomitant]
     Dosage: 400 MG
     Route: 048
  4. CRESTOR [Concomitant]
     Indication: BLOOD CHOLESTEROL INCREASED
     Dosage: 20 MG
     Route: 048
  5. ASPIRIN [Concomitant]
     Indication: CARDIAC DISORDER
     Dosage: 81 MG
     Route: 048
  6. SYNTHROID [Concomitant]
     Indication: THYROID DISORDER
     Dosage: 100 MG
     Route: 048
  7. PRADAXA [Suspect]
     Dosage: 150 MG
     Route: 048
     Dates: start: 20101222
  8. VITAMIN E [Concomitant]
     Indication: ARTERIAL DISORDER
     Dosage: 400 MG
     Route: 048
  9. NORVASC [Concomitant]
     Dosage: 25 MG
     Route: 048
  10. DIGOXIN [Concomitant]
     Indication: CARDIAC DISORDER
     Dosage: 125 MG
     Route: 048
  11. METOPROLOL TARTRATE [Concomitant]
     Indication: CARDIAC DISORDER
     Dosage: 500 MG
     Route: 048
  12. RAMIPRIL [Concomitant]
     Indication: CARDIAC DISORDER
     Dosage: 10 MG
     Route: 048
  13. PLAVIX [Concomitant]
     Indication: CARDIAC DISORDER
     Dosage: 75 MG
     Route: 048
  14. NIASPAN XR [Concomitant]
     Indication: ARTERIAL DISORDER
     Dosage: 500 MG
     Route: 048
  15. IMDUR [Concomitant]
     Indication: CARDIAC DISORDER
     Dosage: 30 MG
     Route: 048

REACTIONS (4)
  - DYSPEPSIA [None]
  - PAIN [None]
  - ODYNOPHAGIA [None]
  - THROAT IRRITATION [None]
